FAERS Safety Report 4978329-8 (Version None)
Quarter: 2006Q2

REPORT INFORMATION
  Report Type: 
  Country: None (occurrence: None)
  Receive Date: 20060417
  Receipt Date: 20060331
  Transmission Date: 20061013
  Serious: Yes (Hospitalization)
  Sender: FDA-Public Use
  Company Number: TRP_0671_2005

PATIENT
  Age: 56 Year
  Sex: Male
  Weight: 122.4712 kg

DRUGS (6)
  1. RIBASPHERE [Suspect]
     Indication: HEPATITIS C
     Dosage: DF PO
     Route: 048
     Dates: start: 20050414, end: 20060316
  2. PEG-INTRON [Suspect]
     Indication: HEPATITIS C
     Dosage: DF SC
     Route: 058
     Dates: start: 20050414, end: 20060309
  3. DARVOCET [Concomitant]
  4. GEMFIBROZIL [Concomitant]
  5. RYNATUSS [Concomitant]
  6. DARVOCET-N 100 TABLETS [Concomitant]

REACTIONS (22)
  - BLISTER [None]
  - BLOOD POTASSIUM DECREASED [None]
  - BLOOD PRESSURE DECREASED [None]
  - BONE PAIN [None]
  - CELLULITIS [None]
  - FATIGUE [None]
  - GASTROINTESTINAL PAIN [None]
  - HAEMOGLOBIN DECREASED [None]
  - HYPERSOMNIA [None]
  - IRRITABILITY [None]
  - MIGRAINE [None]
  - MUSCLE SPASMS [None]
  - NAUSEA [None]
  - OEDEMA PERIPHERAL [None]
  - PAIN IN EXTREMITY [None]
  - PALLOR [None]
  - PROCTALGIA [None]
  - PULMONARY CONGESTION [None]
  - RASH ERYTHEMATOUS [None]
  - RED BLOOD CELL COUNT DECREASED [None]
  - TREATMENT NONCOMPLIANCE [None]
  - WHITE BLOOD CELL COUNT DECREASED [None]
